FAERS Safety Report 7483311-5 (Version None)
Quarter: 2011Q2

REPORT INFORMATION
  Report Type: 
  Country: None (occurrence: None)
  Receive Date: 20110517
  Receipt Date: 20110510
  Transmission Date: 20111010
  Serious: Yes (Hospitalization)
  Sender: FDA-Public Use
  Company Number: US-BAYER-02/00969-USE

PATIENT
  Age: 39 Year
  Sex: Female
  Weight: 62 kg

DRUGS (2)
  1. SYNTHROID [Concomitant]
  2. YASMIN [Suspect]
     Indication: MENSTRUAL CYCLE MANAGEMENT
     Dosage: 1 TAB/DAY
     Route: 048
     Dates: start: 20010801, end: 20020124

REACTIONS (4)
  - HYPOAESTHESIA [None]
  - PULMONARY EMBOLISM [None]
  - CHEST PAIN [None]
  - PAIN IN EXTREMITY [None]
